FAERS Safety Report 6552074-X (Version None)
Quarter: 2010Q1

REPORT INFORMATION
  Report Type: 
  Country: None (occurrence: None)
  Receive Date: 20100120
  Receipt Date: 20100105
  Transmission Date: 20100710
  Serious: Yes (Other)
  Sender: FDA-Public Use
  Company Number: US-DEXPHARMA-20100004

PATIENT
  Sex: Female
  Weight: 63.49 kg

DRUGS (1)
  1. OMEPRAZOLE [Suspect]
     Dosage: 20 MG ONCE A DAY, ORAL
     Route: 048
     Dates: start: 20091231, end: 20100102

REACTIONS (8)
  - DIZZINESS [None]
  - DRUG HYPERSENSITIVITY [None]
  - EAR PAIN [None]
  - HEADACHE [None]
  - HEART RATE INCREASED [None]
  - NERVOUSNESS [None]
  - OROPHARYNGEAL PAIN [None]
  - THERAPEUTIC PRODUCT INEFFECTIVE [None]
